FAERS Safety Report 4943581-1 (Version None)
Quarter: 2006Q1

REPORT INFORMATION
  Report Type: 
  Country: None (occurrence: None)
  Receive Date: 20060310
  Receipt Date: 20060308
  Transmission Date: 20060701
  Serious: Yes (Hospitalization)
  Sender: FDA-Public Use
  Company Number: LTI2006A00062

PATIENT
  Sex: Female

DRUGS (1)
  1. LEUPROLIDE ACETATE [Suspect]
     Indication: DRUG USE FOR UNKNOWN INDICATION
     Dosage: 11.25 MG (11.25 MG, 1 IN 3 M) SUBCUTANEOUS DAYS
     Route: 058
     Dates: start: 20050901

REACTIONS (1)
  - BRAIN OEDEMA [None]
